FAERS Safety Report 6328773-1 (Version None)
Quarter: 2009Q3

REPORT INFORMATION
  Report Type: 
  Country: None (occurrence: None)
  Receive Date: 20090630
  Receipt Date: 20090511
  Transmission Date: 20100115
  Serious: Yes (Other)
  Sender: FDA-Public Use
  Company Number: MPS1-1000211

PATIENT
  Age: 3 Year
  Sex: Male

DRUGS (7)
  1. ALDURAZYME [Suspect]
     Indication: MUCOPOLYSACCHARIDOSIS I
     Dosage: 8.7 MG
     Dates: start: 20090415
  2. ACETAMINOPHEN [Concomitant]
  3. DIPHENHYDRAMINE HCL [Concomitant]
  4. LIDOCAINE [Concomitant]
  5. ALBUTEROL [Concomitant]
  6. PULMICORT [Concomitant]
  7. CIPRODEX (CIPROFLOXACIN, DEXAMETHASONE) [Concomitant]

REACTIONS (1)
  - HYPOTENSION [None]
